FAERS Safety Report 17256876 (Version 1)
Quarter: 2020Q1

REPORT INFORMATION
  Report Type: Spontaneous
  Country: US (occurrence: US)
  Receive Date: 20200108
  Receipt Date: 20200108
  Transmission Date: 20200409
  Serious: Yes (Disabling)
  Sender: FDA-Public Use
  Company Number: None

PATIENT
  Age: 41 Year
  Sex: Female
  Weight: 101.25 kg

DRUGS (9)
  1. OXYCODONE AND ACETAMINOPHEN TABLETS, USP [Suspect]
     Active Substance: ACETAMINOPHEN\OXYCODONE HYDROCHLORIDE
     Indication: ALBRIGHT^S DISEASE
     Dosage: ?          QUANTITY:100 TABLET(S);?
     Route: 048
     Dates: start: 20191209, end: 20200107
  2. FENOFIBRIC [Concomitant]
     Active Substance: FENOFIBRIC ACID
  3. LOSARTAN. [Concomitant]
     Active Substance: LOSARTAN
  4. HYDROXYZINE [Concomitant]
     Active Substance: HYDROXYZINE HYDROCHLORIDE
  5. MONTELUKEST [Concomitant]
  6. ROBAXIN [Concomitant]
     Active Substance: METHOCARBAMOL
  7. MORPHINE [Concomitant]
     Active Substance: MORPHINE
  8. XYZAL [Concomitant]
     Active Substance: LEVOCETIRIZINE DIHYDROCHLORIDE
  9. DULOXETINE. [Concomitant]
     Active Substance: DULOXETINE

REACTIONS (11)
  - Diarrhoea [None]
  - Flushing [None]
  - Drug ineffective [None]
  - Pyrexia [None]
  - Swelling face [None]
  - Hypertension [None]
  - Gait inability [None]
  - Product substitution issue [None]
  - Movement disorder [None]
  - Eating disorder [None]
  - Product physical issue [None]

NARRATIVE: CASE EVENT DATE: 20191209
